FAERS Safety Report 5915661-5 (Version None)
Quarter: 2008Q4

REPORT INFORMATION
  Report Type: 
  Country: None (occurrence: None)
  Receive Date: 20081010
  Receipt Date: 20080930
  Transmission Date: 20090506
  Serious: Yes (Hospitalization, Other)
  Sender: FDA-Public Use
  Company Number: US-PFIZER INC-2008082152

PATIENT
  Sex: Male
  Weight: 136.1 kg

DRUGS (6)
  1. GEODON [Suspect]
     Indication: HYPOCHONDRIASIS
     Route: 048
     Dates: start: 20060101
  2. GEODON [Suspect]
     Indication: INSOMNIA
  3. PROGESTERONE [Suspect]
  4. ALL OTHER THERAPEUTIC PRODUCTS [Suspect]
  5. TROSPIUM [Suspect]
  6. ALL OTHER THERAPEUTIC PRODUCTS [Concomitant]

REACTIONS (14)
  - ARTHRITIS [None]
  - BACK PAIN [None]
  - BODY HEIGHT DECREASED [None]
  - DYSLEXIA [None]
  - FIBROMYALGIA [None]
  - MALAISE [None]
  - MUSCLE DISORDER [None]
  - MUSCULOSKELETAL CHEST PAIN [None]
  - NEOPLASM MALIGNANT [None]
  - PAIN [None]
  - POLLAKIURIA [None]
  - RHEUMATOID ARTHRITIS [None]
  - VISION BLURRED [None]
  - WEIGHT INCREASED [None]
